FAERS Safety Report 16190015 (Version 1)
Quarter: 2019Q2

REPORT INFORMATION
  Report Type: Spontaneous
  Country: US (occurrence: US)
  Receive Date: 20190309
  Receipt Date: 20190309
  Transmission Date: 20190711
  Serious: No
  Sender: FDA-Public Use
  Company Number: None

PATIENT
  Age: 56 Year
  Sex: Female

DRUGS (1)
  1. SIROLIMUS TAB 0.5MG [Suspect]
     Active Substance: SIROLIMUS
     Dates: start: 201803

REACTIONS (9)
  - Pleural effusion [None]
  - Pyrexia [None]
  - Nausea [None]
  - Diarrhoea [None]
  - Constipation [None]
  - Cytomegalovirus infection [None]
  - Pericardial effusion [None]
  - Disturbance in attention [None]
  - Thrombosis [None]

NARRATIVE: CASE EVENT DATE: 20190309
